FAERS Safety Report 5861696-0 (Version None)
Quarter: 2008Q3

REPORT INFORMATION
  Report Type: 
  Country: None (occurrence: None)
  Receive Date: 20080827
  Receipt Date: 20080625
  Transmission Date: 20090109
  Serious: No
  Sender: FDA-Public Use
  Company Number: US-ABBOTT-08P-163-0459265-00

PATIENT
  Sex: Female
  Weight: 74.91 kg

DRUGS (13)
  1. COATED PDS [Suspect]
     Indication: BLOOD TRIGLYCERIDES INCREASED
     Dosage: 500MG AT BEDTIME
     Route: 048
     Dates: start: 20080501, end: 20080601
  2. COATED PDS [Suspect]
     Dosage: 1000MG AT BEDTIME
     Route: 048
     Dates: start: 20080601
  3. ACETYLSALICYLIC ACID SRT [Concomitant]
     Indication: PROPHYLAXIS
     Route: 048
     Dates: start: 20080501
  4. LEVOTHYROXINE SODIUM [Concomitant]
     Indication: HYPOTHYROIDISM
     Route: 048
  5. PANTOPRAZOLE [Concomitant]
     Indication: GASTROOESOPHAGEAL REFLUX DISEASE
     Route: 048
  6. FLUOXETINE [Concomitant]
     Indication: HORMONE LEVEL ABNORMAL
  7. FISH OIL [Concomitant]
     Indication: BLOOD CHOLESTEROL
     Route: 048
  8. FISH OIL [Concomitant]
  9. FISH OIL [Concomitant]
     Indication: DRUG USE FOR UNKNOWN INDICATION
     Route: 048
  10. MULTI-B VITAMIN [Concomitant]
     Indication: VITAMIN SUPPLEMENTATION
     Route: 048
  11. DAILY VITAMINS [Concomitant]
     Indication: VITAMIN SUPPLEMENTATION
     Route: 048
  12. GLICLAZIDE [Concomitant]
     Indication: SEASONAL ALLERGY
     Route: 048
  13. MAGNESIUM SULFATE [Concomitant]
     Indication: MINERAL SUPPLEMENTATION
     Route: 048

REACTIONS (2)
  - FLUSHING [None]
  - MUSCLE SPASMS [None]
